FAERS Safety Report 11968414 (Version 1)
Quarter: 2016Q1

REPORT INFORMATION
  Report Type: Report from Study
  Country: BR (occurrence: BR)
  Receive Date: 20160128
  Receipt Date: 20160128
  Transmission Date: 20160526
  Serious: Yes (Other)
  Sender: FDA-Public Use
  Company Number: BR-BRISTOL-MYERS SQUIBB COMPANY-14971238

PATIENT
  Age: 30 Year
  Sex: Female
  Weight: 68.9 kg

DRUGS (4)
  1. EXTERNAL-MYCOPHENOLATE MOFETIL [Suspect]
     Active Substance: MYCOPHENOLATE MOFETIL
     Indication: SYSTEMIC LUPUS ERYTHEMATOSUS
     Dosage: 1 G, BID
     Route: 048
     Dates: start: 20080921, end: 20091001
  2. EXTERNAL-PREDNISOLONE [Suspect]
     Active Substance: PREDNISOLONE
     Indication: SYSTEMIC LUPUS ERYTHEMATOSUS
     Dosage: 10 MG, QD
     Route: 048
     Dates: start: 20090807
  3. ABATACEPT [Suspect]
     Active Substance: ABATACEPT
     Indication: SYSTEMIC LUPUS ERYTHEMATOSUS
     Dosage: 10 MG/KG, UNK
     Route: 042
     Dates: start: 20090831, end: 20090928
  4. LOSARTAN. [Concomitant]
     Active Substance: LOSARTAN
     Indication: LUPUS NEPHRITIS
     Dosage: 50 MG, QD
     Route: 048
     Dates: start: 20090314, end: 20091001

REACTIONS (5)
  - Complication of pregnancy [None]
  - Maternal condition affecting foetus [None]
  - Abortion spontaneous [Unknown]
  - Maternal exposure during pregnancy [None]
  - Pregnancy on contraceptive [Recovered/Resolved]

NARRATIVE: CASE EVENT DATE: 200910
